FAERS Safety Report 5907605-7 (Version None)
Quarter: 2008Q4

REPORT INFORMATION
  Report Type: 
  Country: None (occurrence: None)
  Receive Date: 20081003
  Receipt Date: 20080930
  Transmission Date: 20090506
  Serious: Yes (Death)
  Sender: FDA-Public Use
  Company Number: NO-MERCK-0809NOR00011

PATIENT
  Age: 62 Year
  Sex: Male

DRUGS (6)
  1. ZOCOR [Suspect]
     Route: 048
     Dates: start: 20030101, end: 20080816
  2. AMOXICILLIN [Concomitant]
     Route: 048
     Dates: start: 20080801, end: 20080805
  3. SODIUM BICARBONATE [Concomitant]
     Route: 065
  4. INDOMETHACIN [Concomitant]
     Route: 048
  5. FUROSEMIDE [Concomitant]
     Route: 048
  6. METOPROLOL TARTRATE [Concomitant]
     Route: 048

REACTIONS (11)
  - HEPARIN-INDUCED THROMBOCYTOPENIA [None]
  - HEPATIC FAILURE [None]
  - MULTI-ORGAN FAILURE [None]
  - MUSCLE NECROSIS [None]
  - PANCREATITIS [None]
  - RENAL FAILURE [None]
  - RESPIRATORY FAILURE [None]
  - RHABDOMYOLYSIS [None]
  - SHOCK [None]
  - SKIN NECROSIS [None]
  - SPLENIC NECROSIS [None]
